FAERS Safety Report 12693936 (Version 1)
Quarter: 2016Q3

REPORT INFORMATION
  Report Type: Spontaneous
  Country: DK (occurrence: DK)
  Receive Date: 20160829
  Receipt Date: 20160829
  Transmission Date: 20161109
  Serious: Yes (Disabling)
  Sender: FDA-Public Use
  Company Number: DK-PFIZER INC-2016399033

PATIENT
  Age: 46 Year
  Sex: Female

DRUGS (1)
  1. NORVASC [Suspect]
     Active Substance: AMLODIPINE BESYLATE
     Indication: HYPERTENSION
     Dosage: SWITCHING BETWEEN 5 AND 10 MG DAILY
     Route: 048
     Dates: start: 20041028, end: 20151103

REACTIONS (12)
  - Muscle spasms [Unknown]
  - Coordination abnormal [Unknown]
  - Dystonia [Unknown]
  - Sensory disturbance [Unknown]
  - Eating disorder [Unknown]
  - Pain [Unknown]
  - Torticollis [Unknown]
  - Peripheral swelling [Unknown]
  - Muscle tightness [Unknown]
  - Oedema [Unknown]
  - Tremor [Unknown]
  - Activities of daily living impaired [Unknown]

NARRATIVE: CASE EVENT DATE: 20050816
